FAERS Safety Report 7151095-6 (Version None)
Quarter: 2010Q4

REPORT INFORMATION
  Report Type: 
  Country: None (occurrence: None)
  Receive Date: 20101210
  Receipt Date: 20101130
  Transmission Date: 20110411
  Serious: Yes (Other)
  Sender: FDA-Public Use
  Company Number: US-JNJFOC-20101200865

PATIENT
  Sex: Female

DRUGS (1)
  1. EXTRA STRENGTH TYLENOL PM RAPID RELEASE [Suspect]
     Indication: INSOMNIA
     Route: 048

REACTIONS (2)
  - LIVER INJURY [None]
  - PRODUCT QUALITY ISSUE [None]
